FAERS Safety Report 25063610 (Version 1)
Quarter: 2025Q1

REPORT INFORMATION
  Report Type: Spontaneous
  Country: US (occurrence: None)
  Receive Date: 20250310
  Receipt Date: 20250310
  Transmission Date: 20250409
  Serious: No
  Sender: FDA-CTU
  Company Number: None

PATIENT
  Age: 90 Year
  Sex: Male
  Weight: 120 kg

DRUGS (1)
  1. SITAGLIPTIN [Suspect]
     Active Substance: SITAGLIPTIN
     Indication: Diabetes mellitus

REACTIONS (2)
  - Headache [None]
  - Neck pain [None]

NARRATIVE: CASE EVENT DATE: 20241227
